FAERS Safety Report 21133281 (Version 2)
Quarter: 2024Q1

REPORT INFORMATION
  Report Type: Spontaneous
  Country: US (occurrence: US)
  Receive Date: 20220726
  Receipt Date: 20240119
  Transmission Date: 20240410
  Serious: No
  Sender: FDA-Public Use
  Company Number: US-PFIZER INC-202201002767

PATIENT
  Age: 83 Year
  Sex: Male
  Weight: 97.506 kg

DRUGS (1)
  1. PAXLOVID [Suspect]
     Active Substance: NIRMATRELVIR\RITONAVIR
     Indication: COVID-19 treatment
     Dosage: UNK
     Dates: start: 20220722

REACTIONS (4)
  - Dysphagia [Unknown]
  - Chest discomfort [Unknown]
  - Throat tightness [Unknown]
  - Dysphonia [Unknown]

NARRATIVE: CASE EVENT DATE: 20220722
